FAERS Safety Report 10066657 (Version 1)
Quarter: 2014Q2

REPORT INFORMATION
  Report Type: Spontaneous
  Country: US (occurrence: None)
  Receive Date: 20140401
  Receipt Date: 20140401
  Transmission Date: 20141212
  Serious: Yes (Hospitalization)
  Sender: FDA-Public Use
  Company Number: PHEH2013US005551

PATIENT
  Age: 74 Year
  Sex: Female

DRUGS (9)
  1. EXELON PATCH [Suspect]
     Indication: AMNESIA
     Route: 062
  2. METOPROLOL [Concomitant]
  3. MIRTAZAPINE [Concomitant]
  4. LISINOPRIL [Concomitant]
  5. ATORVASTATIN [Concomitant]
  6. NAMENDA (MEMANTINE HYDROCHLORIDE) [Concomitant]
  7. CALCIUM [Concomitant]
  8. ASPIRIN (ACETYLSALICYLIC ACID) [Concomitant]
  9. DOCUSATE SODIUM [Concomitant]

REACTIONS (3)
  - Cerebrovascular accident [None]
  - Drug administration error [None]
  - Wrong drug administered [None]
